FAERS Safety Report 4348953-4 (Version None)
Quarter: 2004Q2

REPORT INFORMATION
  Report Type: 
  Country: None (occurrence: None)
  Receive Date: 20040423
  Receipt Date: 20040413
  Transmission Date: 20050107
  Serious: Yes (Hospitalization, Other)
  Sender: FDA-Public Use
  Company Number: B0329119A

PATIENT
  Age: 74 Year
  Sex: Male

DRUGS (11)
  1. FORTAZ [Suspect]
     Dates: start: 20020101, end: 20020101
  2. AMIKACIN [Suspect]
     Dates: start: 20020101, end: 20020101
  3. VANCOMYCIN [Concomitant]
  4. METRONIDAZOLE [Concomitant]
  5. ETOPOSIDE [Concomitant]
  6. MITOZANTRONE [Concomitant]
  7. PREDNISOLONE [Concomitant]
  8. CYCLOPHOSPHAMIDE [Concomitant]
  9. DOXORUBICIN HYDROCHLORIDE [Concomitant]
  10. VINCRISTINE [Concomitant]
  11. LACT. ACID-PRODUCING ORGS [Concomitant]

REACTIONS (6)
  - ASCITES [None]
  - CLOSTRIDIUM COLITIS [None]
  - HYPOVOLAEMIA [None]
  - LARGE INTESTINAL ULCER [None]
  - PLEURAL EFFUSION [None]
  - RESPIRATORY DISTRESS [None]
